FAERS Safety Report 15508015 (Version 1)
Quarter: 2018Q4

REPORT INFORMATION
  Report Type: Spontaneous
  Country: US (occurrence: US)
  Receive Date: 20181016
  Receipt Date: 20181016
  Transmission Date: 20190205
  Serious: Yes (Life-Threatening, Hospitalization)
  Sender: FDA-Public Use
  Company Number: US-BAYER-2018-190349

PATIENT
  Age: 54 Year
  Sex: Female

DRUGS (3)
  1. TICAGRELOR. [Interacting]
     Active Substance: TICAGRELOR
     Indication: MYOCARDIAL INFARCTION
     Dosage: 180 MG, UNK
  2. ACETYLSALICYLIC ACID (} 100 MG) [Suspect]
     Active Substance: ASPIRIN
     Indication: MYOCARDIAL INFARCTION
     Dosage: 325 MG, UNK
  3. HEPARIN [Interacting]
     Active Substance: HEPARIN SODIUM
     Indication: MYOCARDIAL INFARCTION
     Dosage: 4000 U, UNK
     Route: 042

REACTIONS (3)
  - Labelled drug-drug interaction medication error [None]
  - Product administration error [None]
  - Pulmonary haemorrhage [None]
